FAERS Safety Report 20551747 (Version 1)
Quarter: 2022Q1

REPORT INFORMATION
  Report Type: Spontaneous
  Country: US (occurrence: US)
  Receive Date: 20220304
  Receipt Date: 20220304
  Transmission Date: 20220423
  Serious: Yes (Hospitalization)
  Sender: FDA-Public Use
  Company Number: US-PFIZER INC-202200315665

PATIENT
  Age: 79 Year
  Sex: Male
  Weight: 100.7 kg

DRUGS (3)
  1. DOBUTAMINE HYDROCHLORIDE [Suspect]
     Active Substance: DOBUTAMINE HYDROCHLORIDE
     Indication: Cardiac failure congestive
     Dosage: UNK
     Dates: start: 20211008, end: 20220125
  2. DOBUTAMINE HYDROCHLORIDE [Suspect]
     Active Substance: DOBUTAMINE HYDROCHLORIDE
     Dosage: UNK (A DRIP EVERYDAY THROUGH A PICC LINE, 5.0, UNKNOWN UNITS)
     Dates: start: 20220127
  3. MILRINONE [Suspect]
     Active Substance: MILRINONE
     Dosage: UNK (EVERYDAY, ROUTE UNKNOWN, DOSE UNKNOWN, THE REST IS UNKNOWN)
     Dates: start: 20220125, end: 20220127

REACTIONS (2)
  - Nausea [Not Recovered/Not Resolved]
  - Illness [Unknown]

NARRATIVE: CASE EVENT DATE: 20220101
